FAERS Safety Report 23233684 (Version 2)
Quarter: 2023Q4

REPORT INFORMATION
  Report Type: Spontaneous
  Country: ES (occurrence: ES)
  Receive Date: 20231128
  Receipt Date: 20231206
  Transmission Date: 20240110
  Serious: Yes (Hospitalization)
  Sender: FDA-Public Use
  Company Number: ES-STADA-291267

PATIENT
  Age: 30 Decade
  Sex: Female

DRUGS (12)
  1. CLOZAPINE [Suspect]
     Active Substance: CLOZAPINE
     Indication: Antipsychotic therapy
     Dosage: 25 MILLIGRAM, ONCE A DAY
     Route: 065
  2. OLANZAPINE [Suspect]
     Active Substance: OLANZAPINE
     Indication: Antipsychotic therapy
     Dosage: UNK
     Route: 065
  3. AMISULPRIDE [Suspect]
     Active Substance: AMISULPRIDE
     Indication: Antipsychotic therapy
     Dosage: 600 MILLIGRAM, ONCE A DAY
     Route: 065
  4. AMISULPRIDE [Suspect]
     Active Substance: AMISULPRIDE
     Dosage: 1200 MILLIGRAM, ONCE A DAY
     Route: 065
  5. LAMOTRIGINE [Suspect]
     Active Substance: LAMOTRIGINE
     Indication: Antipsychotic therapy
     Dosage: 75 MILLIGRAM, ONCE A DAY
     Route: 065
  6. RISPERIDONE [Suspect]
     Active Substance: RISPERIDONE
     Indication: Antipsychotic therapy
     Dosage: UNK
     Route: 065
  7. ARIPIPRAZOLE [Suspect]
     Active Substance: ARIPIPRAZOLE
     Indication: Antipsychotic therapy
     Dosage: UNK
     Route: 065
  8. LITHIUM [Suspect]
     Active Substance: LITHIUM
     Indication: Antipsychotic therapy
     Dosage: 800 MILLIGRAM, ONCE A DAY
     Route: 065
  9. CLONAZEPAM [Concomitant]
     Active Substance: CLONAZEPAM
     Indication: Antipsychotic therapy
     Dosage: 8 MILLIGRAM, ONCE A DAY
     Route: 065
  10. VALPROATE [Concomitant]
     Active Substance: VALPROIC ACID
     Indication: Antipsychotic therapy
     Dosage: 400 MILLIGRAM, ONCE A DAY
     Route: 065
  11. QUETIAPINE [Concomitant]
     Active Substance: QUETIAPINE
     Indication: Antipsychotic therapy
     Dosage: 75 MILLIGRAM, ONCE A DAY
     Route: 065
  12. Bamocaftor;Ivacaftor;Tezacaftor [Concomitant]
     Indication: Cystic fibrosis
     Dosage: UNK
     Route: 065

REACTIONS (11)
  - Galactorrhoea [Unknown]
  - Oedema [Unknown]
  - Nystagmus [Unknown]
  - Gait disturbance [Unknown]
  - Mental disorder [Unknown]
  - Salivary hypersecretion [Unknown]
  - Deja vu [Unknown]
  - Discomfort [Unknown]
  - Rash [Unknown]
  - Drug intolerance [Unknown]
  - Drug ineffective [Unknown]
